FAERS Safety Report 9063398 (Version 3)
Quarter: 2013Q3

REPORT INFORMATION
  Report Type: Report from Study
  Country: BR (occurrence: BR)
  Receive Date: 20130213
  Receipt Date: 20130905
  Transmission Date: 20140515
  Serious: Yes (Other)
  Sender: FDA-Public Use
  Company Number: PHHY2013BR013004

PATIENT
  Sex: Female
  Weight: 51 kg

DRUGS (7)
  1. ACLASTA [Suspect]
     Indication: OSTEOPOROSIS
     Dosage: 5 MG/100ML, PER YEAR
     Route: 042
     Dates: start: 201112
  2. DIOVAN TRIPLO [Concomitant]
     Indication: HYPERTENSION
     Dosage: 1 DF, PER DAY
     Route: 048
  3. PREDNISONE [Concomitant]
     Indication: RHEUMATOID ARTHRITIS
     Dosage: 5 MG, EVERY OTHER DAY
     Route: 048
     Dates: start: 2005
  4. LEFLUNOMIDE [Concomitant]
     Indication: JOINT SWELLING
     Dosage: 20 MG, PER DAY (AFTER LUNCH)
     Route: 048
  5. SIMVASTATIN [Concomitant]
     Indication: BLOOD CHOLESTEROL INCREASED
     Dosage: 20 MG, PER DAY (EVERY MORNING)
     Route: 048
  6. OMEPRAZOLE [Concomitant]
     Indication: HIATUS HERNIA
     Dosage: 20 MG, A DAY
     Route: 048
     Dates: start: 2000
  7. OMEPRAZOLE [Concomitant]
     Indication: ULCER

REACTIONS (2)
  - Foot fracture [Not Recovered/Not Resolved]
  - Local swelling [Not Recovered/Not Resolved]
